FAERS Safety Report 13558351 (Version 1)
Quarter: 2017Q2

REPORT INFORMATION
  Report Type: Spontaneous
  Country: US (occurrence: US)
  Receive Date: 20170518
  Receipt Date: 20170518
  Transmission Date: 20170830
  Serious: Yes (Hospitalization)
  Sender: FDA-Public Use
  Company Number: None

PATIENT
  Age: 59 Year
  Sex: Female
  Weight: 103.5 kg

DRUGS (11)
  1. CELEXA [Concomitant]
     Active Substance: CITALOPRAM HYDROBROMIDE
  2. NORCO [Concomitant]
     Active Substance: ACETAMINOPHEN\HYDROCODONE BITARTRATE
  3. FOCALIN [Concomitant]
     Active Substance: DEXMETHYLPHENIDATE HYDROCHLORIDE
  4. DIAZEPAM. [Concomitant]
     Active Substance: DIAZEPAM
  5. POTASSIUM [Concomitant]
     Active Substance: POTASSIUM
  6. OPDIVO [Suspect]
     Active Substance: NIVOLUMAB
     Indication: NON-SMALL CELL LUNG CANCER STAGE IV
     Route: 042
  7. LEVOTHYROXINE. [Concomitant]
     Active Substance: LEVOTHYROXINE
  8. STEROID TAPER [Concomitant]
  9. CYTOMEL [Concomitant]
     Active Substance: LIOTHYRONINE SODIUM
  10. DEPLIN [Concomitant]
     Active Substance: LEVOMEFOLATE CALCIUM
  11. PEPCID COMPLETE [Concomitant]
     Active Substance: CALCIUM CARBONATE\FAMOTIDINE\MAGNESIUM HYDROXIDE

REACTIONS (6)
  - Therapy cessation [None]
  - Body temperature increased [None]
  - Fatigue [None]
  - Urinary tract infection [None]
  - Rash erythematous [None]
  - Dyspnoea [None]

NARRATIVE: CASE EVENT DATE: 20170404
